FAERS Safety Report 7947493 (Version 7)
Quarter: 2019Q1

REPORT INFORMATION
  Report Type: Spontaneous
  Country: JP (occurrence: JP)
  Receive Date: 20110517
  Receipt Date: 20190327
  Transmission Date: 20190418
  Serious: Yes (Hospitalization, Other)
  Sender: FDA-Public Use
  Company Number: PHHY2011JP38278

PATIENT
  Age: 60 Year
  Sex: Female
  Weight: 39 kg

DRUGS (18)
  1. DOCETAXEL. [Concomitant]
     Active Substance: DOCETAXEL
     Indication: BREAST CANCER METASTATIC
     Dosage: 75 MG/M2, TIW
     Route: 041
  2. MEYLON [Concomitant]
     Active Substance: SODIUM BICARBONATE
     Indication: PRODUCT USED FOR UNKNOWN INDICATION
     Dosage: 100 ML, UNK
     Route: 065
  3. PACLITAXEL. [Suspect]
     Active Substance: PACLITAXEL
     Dosage: 52 MG, UNK
     Route: 041
     Dates: start: 20100112, end: 20100518
  4. EPIRUBICIN HYDROCHLORIDE. [Concomitant]
     Active Substance: EPIRUBICIN HYDROCHLORIDE
     Indication: BREAST CANCER METASTATIC
     Dosage: 100 MG/M2, TIW
     Route: 041
  5. ELCITONIN [Concomitant]
     Active Substance: ELCATONIN
     Indication: HYPERCALCAEMIA
     Dosage: 40 IU, BID
     Route: 042
     Dates: start: 20090930, end: 20091002
  6. PACLITAXEL. [Suspect]
     Active Substance: PACLITAXEL
     Dosage: 30 MG, UNK
     Route: 041
     Dates: start: 20091228, end: 20091228
  7. PACLITAXEL. [Suspect]
     Active Substance: PACLITAXEL
     Dosage: 52 MG, UNK
     Route: 041
     Dates: start: 20100105, end: 20100105
  8. SPIRONOLACTONE. [Concomitant]
     Active Substance: SPIRONOLACTONE
     Indication: PRODUCT USED FOR UNKNOWN INDICATION
     Dosage: UNK
     Route: 065
  9. CYCLOPHOSPHAMIDE. [Concomitant]
     Active Substance: CYCLOPHOSPHAMIDE
     Indication: BREAST CANCER METASTATIC
     Dosage: UNK
     Route: 065
  10. ZOMETA [Suspect]
     Active Substance: ZOLEDRONIC ACID
     Indication: HYPERCALCAEMIA OF MALIGNANCY
     Dosage: 4 MG, OVER 15 MINUTES WEEKLY
     Route: 041
     Dates: start: 20090930, end: 20091126
  11. 5-FU [Concomitant]
     Active Substance: FLUOROURACIL
     Indication: BREAST CANCER METASTATIC
     Dosage: 500 MG/M2, TIW
     Route: 041
  12. HERCEPTIN [Concomitant]
     Active Substance: TRASTUZUMAB
     Indication: BREAST CANCER METASTATIC
     Dosage: 98 MG, UNK
     Route: 042
     Dates: start: 20091006, end: 20100518
  13. PACLITAXEL. [Suspect]
     Active Substance: PACLITAXEL
     Dosage: 100 MG, UNK
     Route: 041
     Dates: start: 20091127, end: 20091215
  14. PACLITAXEL. [Suspect]
     Active Substance: PACLITAXEL
     Dosage: 50 MG, UNK
     Route: 041
     Dates: start: 20091113, end: 20091113
  15. PACLITAXEL. [Suspect]
     Active Substance: PACLITAXEL
     Dosage: 80 MG, UNK
     Route: 041
     Dates: start: 20091120, end: 20091120
  16. TRASTUZUMAB. [Suspect]
     Active Substance: TRASTUZUMAB
     Indication: HYPERCALCAEMIA OF MALIGNANCY
     Dosage: 4 MG/KG, UNK
     Route: 065
  17. TRASTUZUMAB. [Suspect]
     Active Substance: TRASTUZUMAB
     Dosage: 2 MG/KG, REPEATED WEEKLY
     Route: 065
     Dates: start: 200910
  18. PACLITAXEL. [Suspect]
     Active Substance: PACLITAXEL
     Indication: BREAST CANCER
     Dosage: 30 MG, UNK
     Route: 041
     Dates: start: 20091030, end: 20091106

REACTIONS (16)
  - Aminoaciduria [Unknown]
  - Glycosuria [Unknown]
  - Acidosis hyperchloraemic [Recovering/Resolving]
  - Metastases to liver [Unknown]
  - Hypophosphataemia [Unknown]
  - Hypouricaemia [Unknown]
  - Proteinuria [Unknown]
  - Blood bicarbonate decreased [Unknown]
  - Diabetic nephropathy [Unknown]
  - Urine potassium increased [Unknown]
  - Urine phosphorus increased [Unknown]
  - Hypocalcaemia [Unknown]
  - Metabolic acidosis [Unknown]
  - Fanconi syndrome [Recovering/Resolving]
  - Hypokalaemia [Unknown]
  - Liver disorder [Unknown]

NARRATIVE: CASE EVENT DATE: 200912
